FAERS Safety Report 13151457 (Version 1)
Quarter: 2017Q1

REPORT INFORMATION
  Report Type: Spontaneous
  Country: US (occurrence: US)
  Receive Date: 20170119
  Receipt Date: 20170119
  Transmission Date: 20170428
  Serious: No
  Sender: FDA-Public Use
  Company Number: None

PATIENT
  Age: 46 Year
  Sex: Male
  Weight: 112.5 kg

DRUGS (2)
  1. ANDROGEN 1.62% [Concomitant]
  2. CHANTIX [Suspect]
     Active Substance: VARENICLINE TARTRATE
     Indication: SMOKING CESSATION THERAPY
     Dosage: ?          QUANTITY:1 TABLET(S);?
     Route: 048
     Dates: start: 20161219, end: 20161227

REACTIONS (3)
  - Anxiety [None]
  - Restlessness [None]
  - Insomnia [None]

NARRATIVE: CASE EVENT DATE: 20161226
